FAERS Safety Report 4430457-1 (Version None)
Quarter: 2004Q3

REPORT INFORMATION
  Report Type: 
  Country: None (occurrence: None)
  Receive Date: 20040721
  Receipt Date: 20030606
  Transmission Date: 20050211
  Serious: Yes (Hospitalization, Disabling, Other)
  Sender: FDA-Public Use
  Company Number: WAES 0210USA02696

PATIENT
  Age: 61 Year
  Sex: Male

DRUGS (3)
  1. VIOXX [Suspect]
     Indication: ARTHRALGIA
     Dosage: 25MG/DAILY/PO
     Route: 048
     Dates: end: 20021027
  2. VIOXX [Suspect]
     Indication: LOCALISED OSTEOARTHRITIS
     Dosage: 25MG/DAILY/PO
     Route: 048
     Dates: end: 20021027
  3. MOTRIN [Concomitant]

REACTIONS (1)
  - PANCREATITIS [None]
